FAERS Safety Report 9054203 (Version 2)
Quarter: 2013Q1

REPORT INFORMATION
  Report Type: Spontaneous
  Country: IL (occurrence: IL)
  Receive Date: 20130208
  Receipt Date: 20130212
  Transmission Date: 20140127
  Serious: Yes (Death)
  Sender: FDA-Public Use
  Company Number: IL-ROCHE-1188939

PATIENT
  Age: 44 Year
  Sex: Female

DRUGS (7)
  1. HERCEPTIN [Suspect]
     Indication: BREAST CANCER METASTATIC
     Route: 065
     Dates: start: 201206
  2. XELODA [Suspect]
     Indication: BREAST CANCER METASTATIC
     Route: 065
     Dates: start: 201210
  3. NAVELBINE [Suspect]
     Indication: BREAST CANCER METASTATIC
     Route: 065
     Dates: start: 201206
  4. LAPATINIB [Suspect]
     Indication: BREAST CANCER METASTATIC
     Route: 065
     Dates: start: 201210
  5. DOXORUBICIN [Concomitant]
     Indication: BREAST CANCER
  6. CYCLOPHOSPHAMIDE [Concomitant]
     Indication: BREAST CANCER
  7. PACLITAXEL [Concomitant]
     Indication: BREAST CANCER METASTATIC

REACTIONS (1)
  - Metastases to lung [Fatal]
